FAERS Safety Report 21271581 (Version 2)
Quarter: 2022Q3

REPORT INFORMATION
  Report Type: Report from Study
  Country: FR (occurrence: FR)
  Receive Date: 20220830
  Receipt Date: 20220907
  Transmission Date: 20221027
  Serious: Yes (Death, Hospitalization, Other)
  Sender: FDA-Public Use
  Company Number: FR-GILEAD-2022-0595608

PATIENT
  Sex: Female
  Weight: 51 kg

DRUGS (2)
  1. SACITUZUMAB GOVITECAN [Suspect]
     Active Substance: SACITUZUMAB GOVITECAN
     Indication: Triple negative breast cancer
     Dosage: 10 MG/KG, D1 AND D8 , D22
     Route: 065
     Dates: start: 20220617, end: 20220624
  2. SACITUZUMAB GOVITECAN [Suspect]
     Active Substance: SACITUZUMAB GOVITECAN
     Dosage: 510 MG
     Route: 042
     Dates: end: 20220809

REACTIONS (4)
  - Death [Fatal]
  - Diarrhoea [Unknown]
  - Aplasia [Unknown]
  - Dehydration [Unknown]

NARRATIVE: CASE EVENT DATE: 20220814
